FAERS Safety Report 16326136 (Version 4)
Quarter: 2019Q4

REPORT INFORMATION
  Report Type: Spontaneous
  Country: US (occurrence: US)
  Receive Date: 20190517
  Receipt Date: 20191014
  Transmission Date: 20200122
  Serious: Yes (Other)
  Sender: FDA-Public Use
  Company Number: US-ACTELION-A-US2019-189785

PATIENT
  Age: 59 Year
  Sex: Male
  Weight: 113.38 kg

DRUGS (10)
  1. OPSUMIT [Suspect]
     Active Substance: MACITENTAN
     Indication: PULMONARY ARTERIAL HYPERTENSION
     Dosage: 10 MG, QD
     Route: 048
  2. ATORVASTATIN [Concomitant]
     Active Substance: ATORVASTATIN
     Dosage: 40 MG
  3. TYLENOL [Concomitant]
     Active Substance: ACETAMINOPHEN
     Dosage: 325 MG
  4. SYMBICORT [Concomitant]
     Active Substance: BUDESONIDE\FORMOTEROL FUMARATE DIHYDRATE
     Dosage: 160-4.5MCG
  5. TADALAFIL. [Concomitant]
     Active Substance: TADALAFIL
     Dosage: 20 MG
  6. SENSIPAR [Concomitant]
     Active Substance: CINACALCET HYDROCHLORIDE
     Dosage: 90 MG
  7. SPIRIVA [Concomitant]
     Active Substance: TIOTROPIUM BROMIDE MONOHYDRATE
     Dosage: 180 MCG
  8. VENTOLIN [Concomitant]
     Active Substance: ALBUTEROL SULFATE
  9. ALBUTEROL. [Concomitant]
     Active Substance: ALBUTEROL
     Dosage: 1.25 MG/3
  10. VELPHORO [Concomitant]
     Active Substance: FERRIC OXYHYDROXIDE
     Dosage: 500 MG

REACTIONS (7)
  - Nasal congestion [Unknown]
  - Abdominal pain upper [Recovered/Resolved]
  - Dialysis [Unknown]
  - Fatigue [Recovering/Resolving]
  - Headache [Unknown]
  - Memory impairment [Unknown]
  - Dyspnoea [Recovering/Resolving]

NARRATIVE: CASE EVENT DATE: 20190417
